FAERS Safety Report 14780688 (Version 2)
Quarter: 2018Q2

REPORT INFORMATION
  Report Type: Spontaneous
  Country: GB (occurrence: GB)
  Receive Date: 20180419
  Receipt Date: 20180611
  Transmission Date: 20180711
  Serious: Yes (Death, Other)
  Sender: FDA-Public Use
  Company Number: GB-PFIZER INC-2018158299

PATIENT
  Age: 19 Year
  Sex: Male
  Weight: 43 kg

DRUGS (1)
  1. SERTRALINE HCL [Suspect]
     Active Substance: SERTRALINE HYDROCHLORIDE
     Indication: DEPRESSION
     Dosage: 50 MG, UNK
     Route: 048
     Dates: start: 20161103, end: 20161130

REACTIONS (3)
  - Depression [Fatal]
  - Condition aggravated [Fatal]
  - Completed suicide [Fatal]

NARRATIVE: CASE EVENT DATE: 20161201
